FAERS Safety Report 5925897-5 (Version None)
Quarter: 2008Q4

REPORT INFORMATION
  Report Type: 
  Country: None (occurrence: None)
  Receive Date: 20081021
  Receipt Date: 20081009
  Transmission Date: 20090506
  Serious: Yes (Hospitalization)
  Sender: FDA-Public Use
  Company Number: DE-PFIZER INC-2008079075

PATIENT
  Sex: Male

DRUGS (1)
  1. SU-011,248 [Suspect]
     Indication: GERM CELL CANCER
     Dosage: DAILY DOSE:50MG
     Route: 048
     Dates: start: 20080805

REACTIONS (2)
  - POSTRENAL FAILURE [None]
  - URINARY RETENTION [None]
